FAERS Safety Report 6914897-4 (Version None)
Quarter: 2010Q3

REPORT INFORMATION
  Report Type: 
  Country: None (occurrence: None)
  Receive Date: 20100809
  Receipt Date: 20100728
  Transmission Date: 20110219
  Serious: Yes (Hospitalization)
  Sender: FDA-Public Use
  Company Number: PHHY2010US49887

PATIENT
  Sex: Female
  Weight: 54.422 kg

DRUGS (1)
  1. EXJADE [Suspect]
     Indication: POLYCYTHAEMIA VERA
     Dosage: 1125 MG DAILY
     Route: 048
     Dates: start: 20091202, end: 20100702

REACTIONS (1)
  - BONE MARROW TRANSPLANT [None]
